FAERS Safety Report 4855954-6 (Version None)
Quarter: 2005Q4

REPORT INFORMATION
  Report Type: 
  Country: None (occurrence: None)
  Receive Date: 20051214
  Receipt Date: 20051129
  Transmission Date: 20060501
  Serious: Yes (Death, Hospitalization)
  Sender: FDA-Public Use
  Company Number: 01/05121-USE

PATIENT
  Age: 79 Year
  Sex: Female

DRUGS (11)
  1. BETASERON [Suspect]
     Indication: SECONDARY PROGRESSIVE MULTIPLE SCLEROSIS
     Dosage: 8 MIU, EVERY 2D, SUBCUTANEOUS
     Route: 058
     Dates: start: 19990112, end: 20010528
  2. NEURONTIN [Concomitant]
  3. TRAZODONE HCL [Concomitant]
  4. TOPROL-XL [Concomitant]
  5. AMANTADINE HCL [Concomitant]
  6. BACLOFEN [Concomitant]
  7. DETROL [Concomitant]
  8. CALCIUM (CALCIUM) [Concomitant]
  9. VITAMIN C + E CAPLETS [Concomitant]
  10. PROVIGIL [Concomitant]
  11. VICODIN [Concomitant]

REACTIONS (6)
  - DYSKINESIA [None]
  - DYSPHAGIA [None]
  - HYPERSOMNIA [None]
  - MALNUTRITION [None]
  - MENTAL IMPAIRMENT [None]
  - PROGRESSIVE MULTIPLE SCLEROSIS [None]
